FAERS Safety Report 8307310-6 (Version None)
Quarter: 2012Q2

REPORT INFORMATION
  Report Type: 
  Country: None (occurrence: None)
  Receive Date: 20120424
  Receipt Date: 20120416
  Transmission Date: 20120825
  Serious: Yes (Other)
  Sender: FDA-Public Use
  Company Number: US-FRI-1000029356

PATIENT
  Sex: Female
  Weight: 83 kg

DRUGS (16)
  1. ZOLPIDEM [Concomitant]
     Indication: INSOMNIA
     Dosage: 5-10 MG AS NEEDED AT BEDTIME
     Route: 048
  2. VIIBRYD [Suspect]
     Indication: DEPRESSION
     Dosage: 10 MG
     Route: 048
     Dates: start: 20111221, end: 20111227
  3. NYSTATIN [Concomitant]
     Route: 061
  4. COUMADIN [Concomitant]
     Dosage: 4 MG
     Route: 048
  5. TRAVATAN [Concomitant]
     Dosage: 1 DROP EACH EYE AT BEDTIME
     Route: 047
  6. KENALOG [Concomitant]
     Dosage: 1 APPLICATION TWICE DAILY
     Route: 061
  7. VIIBRYD [Suspect]
     Indication: ANXIETY
     Dosage: 20 MG
     Route: 048
     Dates: start: 20111228, end: 20120103
  8. VIIBRYD [Suspect]
  9. PRINZIDE [Concomitant]
     Dosage: 20/12.5 MG DAILY
     Route: 048
  10. GLUCOVANCE [Concomitant]
     Dosage: 5/500 MG TWICE DAILY
     Route: 048
  11. LOVASTATIN [Concomitant]
     Dosage: 20 MG
     Route: 048
  12. SERTRALINE HYDROCHLORIDE [Concomitant]
     Dosage: 50 MG
     Route: 048
  13. ATENOLOL [Concomitant]
     Dosage: 25 MG
     Route: 048
  14. ALBUTEROL [Concomitant]
     Dosage: 2 PUFFS THREE TIMES DAILY
     Route: 048
  15. OMEPRAZOLE [Concomitant]
     Dosage: 20 MG
     Route: 048
  16. VIIBRYD [Suspect]
     Dosage: 40 MG
     Route: 048
     Dates: start: 20120104, end: 20120123

REACTIONS (9)
  - MENTAL STATUS CHANGES [None]
  - URINARY HESITATION [None]
  - PARANOIA [None]
  - BACK PAIN [None]
  - PYURIA [None]
  - FATIGUE [None]
  - COUGH [None]
  - DRY MOUTH [None]
  - DIARRHOEA [None]
